FAERS Safety Report 19696956 (Version 2)
Quarter: 2021Q3

REPORT INFORMATION
  Report Type: Report from Study
  Country: US (occurrence: US)
  Receive Date: 20210813
  Receipt Date: 20210927
  Transmission Date: 20211014
  Serious: No
  Sender: FDA-Public Use
  Company Number: US-IPSEN BIOPHARMACEUTICALS, INC.-2021-19452

PATIENT
  Age: 63 Year
  Sex: Female

DRUGS (3)
  1. SOMATULINE DEPOT [Suspect]
     Active Substance: LANREOTIDE ACETATE
     Indication: GASTROENTEROPANCREATIC NEUROENDOCRINE TUMOUR DISEASE
     Dosage: 60 MG TO TITRATE UP TO 120 MG EVENTUALLY
     Route: 058
     Dates: start: 202107, end: 202107
  2. SOMATULINE DEPOT [Suspect]
     Active Substance: LANREOTIDE ACETATE
     Indication: PANCREATIC CARCINOMA
     Route: 058
     Dates: start: 202107
  3. SOMATULINE DEPOT [Suspect]
     Active Substance: LANREOTIDE ACETATE
     Indication: OFF LABEL USE

REACTIONS (8)
  - Flatulence [Recovering/Resolving]
  - Injection site mass [Unknown]
  - Off label use [Unknown]
  - Product administered at inappropriate site [Unknown]
  - Muscle spasms [Unknown]
  - Diarrhoea [Unknown]
  - Injection site mass [Recovering/Resolving]
  - Off label use [Unknown]

NARRATIVE: CASE EVENT DATE: 2021
